FAERS Safety Report 17841665 (Version 1)
Quarter: 2020Q2

REPORT INFORMATION
  Report Type: Spontaneous
  Country: ES (occurrence: ES)
  Receive Date: 20200529
  Receipt Date: 20200529
  Transmission Date: 20200714
  Serious: Yes (Other)
  Sender: FDA-Public Use
  Company Number: ES-MYLANLABS-2020M1051989

PATIENT
  Age: 12 Year
  Sex: Female
  Weight: 38 kg

DRUGS (6)
  1. CEFEPIMA                           /01263801/ [Suspect]
     Active Substance: CEFEPIME HYDROCHLORIDE
     Indication: FEBRILE NEUTROPENIA
     Dosage: 2000MG/8H
     Route: 042
     Dates: start: 20191019, end: 20191025
  2. PARACETAMOL [Suspect]
     Active Substance: ACETAMINOPHEN
     Indication: FEBRILE NEUTROPENIA
     Dosage: 430MG/8H IF YOU NEED
     Route: 042
     Dates: start: 20191019, end: 20191024
  3. CITARABINA [Suspect]
     Active Substance: CYTARABINE
     Indication: ACUTE MYELOID LEUKAEMIA
     Dosage: CITARABINA 2000MG/M2 (TOTAL 5 DOSES)
     Route: 042
     Dates: start: 20191023, end: 20191026
  4. METOTREXATO                        /00113801/ [Suspect]
     Active Substance: METHOTREXATE
     Indication: ACUTE MYELOID LEUKAEMIA
     Dosage: INTRATHECAL METHOTREXATE ON THE FIRST DAY OF THE CYCLE
     Route: 037
     Dates: start: 20191023, end: 20191023
  5. LINEZOLID MYLAN [Suspect]
     Active Substance: LINEZOLID
     Indication: FEBRILE NEUTROPENIA
     Dosage: 400MG/12H
     Route: 042
     Dates: start: 20191020, end: 20191025
  6. FLUDARABINA                        /01004601/ [Suspect]
     Active Substance: FLUDARABINE PHOSPHATE
     Indication: ACUTE MYELOID LEUKAEMIA
     Dosage: FLUDARABINA 30MG/M2 (TOTAL 5 DOSIS)
     Route: 042
     Dates: start: 20191023, end: 20191026

REACTIONS (2)
  - Hepatitis [Recovered/Resolved]
  - Hyperbilirubinaemia [Recovered/Resolved]

NARRATIVE: CASE EVENT DATE: 20191031
